FAERS Safety Report 5437389-0 (Version None)
Quarter: 2007Q3

REPORT INFORMATION
  Report Type: 
  Country: None (occurrence: None)
  Receive Date: 20070831
  Receipt Date: 20070828
  Transmission Date: 20080115
  Serious: Yes (Hospitalization, Disabling, Other)
  Sender: FDA-Public Use
  Company Number: US-MERCK-0706USA01280

PATIENT
  Age: 55 Year
  Sex: Female
  Weight: 87 kg

DRUGS (9)
  1. JANUVIA [Suspect]
     Indication: TYPE 2 DIABETES MELLITUS
     Route: 048
     Dates: start: 20070307
  2. PLAVIX [Concomitant]
     Route: 048
  3. LISINOPRIL [Concomitant]
     Route: 048
  4. LANTUS [Concomitant]
     Route: 058
  5. GLUCOPHAGE [Concomitant]
     Route: 065
  6. SYNTHROID [Concomitant]
     Route: 065
  7. KLONOPIN [Concomitant]
     Route: 048
  8. [THERAPY UNSPECIFIED] [Concomitant]
     Indication: DEPRESSION
     Route: 065
  9. HUMALOG [Concomitant]
     Route: 065

REACTIONS (8)
  - ACUTE CORONARY SYNDROME [None]
  - BRAIN STEM INFARCTION [None]
  - CEREBROVASCULAR ACCIDENT [None]
  - CORONARY ARTERY DISEASE [None]
  - DRUG INEFFECTIVE [None]
  - NAUSEA [None]
  - PERIPHERAL VASCULAR DISORDER [None]
  - TRANSIENT ISCHAEMIC ATTACK [None]
